FAERS Safety Report 7301234-9 (Version None)
Quarter: 2011Q1

REPORT INFORMATION
  Report Type: 
  Country: None (occurrence: None)
  Receive Date: 20110112
  Receipt Date: 20090108
  Transmission Date: 20110831
  Serious: Yes (Other)
  Sender: FDA-Public Use
  Company Number: THYM-1000879

PATIENT
  Sex: Female

DRUGS (1)
  1. THYMOGLOBULIN [Suspect]
     Indication: PRODUCT USED FOR UNKNOWN INDICATION
     Dosage: INTRAVENOUS
     Route: 042

REACTIONS (1)
  - ANAPHYLACTIC REACTION [None]
